FAERS Safety Report 5228814-9 (Version None)
Quarter: 2007Q1

REPORT INFORMATION
  Report Type: 
  Country: None (occurrence: None)
  Receive Date: 20070131
  Receipt Date: 20070119
  Transmission Date: 20070707
  Serious: Yes (Hospitalization)
  Sender: FDA-Public Use
  Company Number: NALJP-07-0076

PATIENT
  Age: 61 Year
  Sex: Male
  Weight: 59 kg

DRUGS (8)
  1. ROPIVACAINE (ROPIVACAINE) [Suspect]
     Indication: EPIDURAL ANAESTHESIA
     Dosage: UNKNOWN,EPIDURAL
     Route: 008
  2. ROPIVACAINE (ROPIVACAINE) [Suspect]
     Indication: INDUCTION OF ANAESTHESIA
     Dosage: UNKNOWN,EPIDURAL
     Route: 008
  3. ROPIVACAINE (ROPIVACAINE) [Suspect]
     Indication: MAINTENANCE OF ANAESTHESIA
     Dosage: UNKNOWN,EPIDURAL
     Route: 008
  4. THIOPENTAL SODIUM [Concomitant]
  5. FENTANYL CITRATE [Concomitant]
  6. VECURONIUM BROMIDE [Concomitant]
  7. OXYGEN [Concomitant]
  8. SEVOFLURANE [Concomitant]

REACTIONS (4)
  - BLOOD CREATINE PHOSPHOKINASE INCREASED [None]
  - HYPERTHERMIA MALIGNANT [None]
  - MUSCULOSKELETAL STIFFNESS [None]
  - MYOGLOBIN BLOOD INCREASED [None]
